FAERS Safety Report 23564618 (Version 6)
Quarter: 2024Q1

REPORT INFORMATION
  Report Type: Spontaneous
  Country: US (occurrence: US)
  Receive Date: 20240226
  Receipt Date: 20240330
  Transmission Date: 20240410
  Serious: Yes (Other)
  Sender: FDA-Public Use
  Company Number: US-AUROBINDO-AUR-APL-2024-008221

PATIENT
  Age: 51 Year
  Sex: Male

DRUGS (6)
  1. TAMSULOSIN HYDROCHLORIDE [Suspect]
     Active Substance: TAMSULOSIN HYDROCHLORIDE
     Indication: Product used for unknown indication
     Dosage: 0.4 MILLIGRAM (30 MINUTES AFTER THE SAME MEAL EACH DAY. SWALLOW THE CAPSULE WHOLE)
     Route: 065
     Dates: start: 20211005
  2. TAMSULOSIN HYDROCHLORIDE [Suspect]
     Active Substance: TAMSULOSIN HYDROCHLORIDE
     Dosage: 04/2023 - DESCRIBING THE SUSPECT DRUG TO BE THE CAUSE OF AN ADVERSE DRUG REACTION.
     Route: 065
     Dates: start: 20211005
  3. CLONAZEPAM [Concomitant]
     Active Substance: CLONAZEPAM
     Indication: Product used for unknown indication
     Dosage: UNK
     Route: 065
  4. DULOXETINE [Concomitant]
     Active Substance: DULOXETINE
     Indication: Fibromyalgia
     Dosage: UNK
     Route: 065
     Dates: start: 2019
  5. DULOXETINE [Concomitant]
     Active Substance: DULOXETINE
     Indication: Diabetic neuropathy
  6. DULOXETINE [Concomitant]
     Active Substance: DULOXETINE
     Indication: Orthopaedic procedure

REACTIONS (14)
  - Acute kidney injury [Unknown]
  - Blood urea increased [Unknown]
  - Petechiae [Unknown]
  - Irritable bowel syndrome [Unknown]
  - Stress [Unknown]
  - Ill-defined disorder [Unknown]
  - Nephropathy toxic [Unknown]
  - Renal impairment [Unknown]
  - Benign prostatic hyperplasia [Unknown]
  - Urinary tract obstruction [Unknown]
  - Renal disorder [Unknown]
  - Dehydration [Unknown]
  - Unevaluable event [Unknown]
  - Drug ineffective [Unknown]
